FAERS Safety Report 5818686-3 (Version None)
Quarter: 2008Q3

REPORT INFORMATION
  Report Type: 
  Country: None (occurrence: None)
  Receive Date: 20080717
  Receipt Date: 20080717
  Transmission Date: 20090109
  Serious: Yes (Hospitalization)
  Sender: FDA-Public Use
  Company Number: None

PATIENT
  Age: 58 Year
  Sex: Female
  Weight: 76.6579 kg

DRUGS (1)
  1. CYMBALTA [Suspect]
     Indication: PAIN

REACTIONS (13)
  - BLOOD PRESSURE INCREASED [None]
  - DECREASED APPETITE [None]
  - DYSPEPSIA [None]
  - DYSPHEMIA [None]
  - FEAR [None]
  - FEELING ABNORMAL [None]
  - GAIT DISTURBANCE [None]
  - HEADACHE [None]
  - HEART RATE INCREASED [None]
  - JOINT STIFFNESS [None]
  - NAUSEA [None]
  - SPEECH DISORDER [None]
  - TREMOR [None]
